FAERS Safety Report 6849994-5 (Version None)
Quarter: 2010Q3

REPORT INFORMATION
  Report Type: 
  Country: None (occurrence: None)
  Receive Date: 20100716
  Receipt Date: 20071015
  Transmission Date: 20110219
  Serious: No
  Sender: FDA-Public Use
  Company Number: US-PFIZER INC-2007085181

PATIENT
  Sex: Female
  Weight: 49.9 kg

DRUGS (7)
  1. CHANTIX [Suspect]
     Indication: SMOKING CESSATION THERAPY
     Dates: start: 20071002, end: 20071010
  2. ULTRAM [Concomitant]
  3. ZOLPIDEM TARTRATE [Concomitant]
  4. ZYRTEC [Concomitant]
  5. PRAVASTATIN [Concomitant]
  6. BACLOFEN [Concomitant]
  7. ACETYLSALICYLIC ACID [Concomitant]

REACTIONS (1)
  - MYALGIA [None]
